FAERS Safety Report 5460336-2 (Version None)
Quarter: 2007Q3

REPORT INFORMATION
  Report Type: 
  Country: None (occurrence: None)
  Receive Date: 20070919
  Receipt Date: 20070906
  Transmission Date: 20080115
  Serious: Yes (Hospitalization)
  Sender: FDA-Public Use
  Company Number: DK-PFIZER INC-2007062526

PATIENT
  Sex: Male

DRUGS (3)
  1. SUTENT [Suspect]
     Indication: COLORECTAL CANCER
     Route: 048
     Dates: start: 20070703, end: 20070727
  2. CETUXIMAB [Suspect]
     Indication: COLORECTAL CANCER
     Route: 042
  3. IRINOTECAN HCL [Suspect]
     Indication: COLORECTAL CANCER
     Route: 042

REACTIONS (2)
  - ASCITES [None]
  - NEUTROPENIA [None]
